FAERS Safety Report 19913750 (Version 3)
Quarter: 2022Q2

REPORT INFORMATION
  Report Type: Report from Study
  Country: JP (occurrence: JP)
  Receive Date: 20211004
  Receipt Date: 20220612
  Transmission Date: 20220721
  Serious: Yes (Death)
  Sender: FDA-Public Use
  Company Number: JP-JNJFOC-20210955109

PATIENT
  Age: 79 Year
  Sex: Male
  Weight: 42.4 kg

DRUGS (9)
  1. UPTRAVI [Suspect]
     Active Substance: SELEXIPAG
     Indication: Pulmonary arterial hypertension
     Dosage: (0.2 MG/12 HOURS)
     Route: 048
     Dates: start: 20170801, end: 20170801
  2. UPTRAVI [Suspect]
     Active Substance: SELEXIPAG
     Dosage: (0.4 MG/12 HOURS)
     Route: 048
     Dates: start: 20170802, end: 20171124
  3. UPTRAVI [Suspect]
     Active Substance: SELEXIPAG
     Dosage: (0.8 MG/12 HOURS)
     Route: 048
     Dates: start: 20171125, end: 20171212
  4. UPTRAVI [Suspect]
     Active Substance: SELEXIPAG
     Route: 048
     Dates: start: 20171213, end: 20171219
  5. UPTRAVI [Suspect]
     Active Substance: SELEXIPAG
     Route: 048
     Dates: start: 20171220, end: 20180319
  6. UPTRAVI [Suspect]
     Active Substance: SELEXIPAG
     Dosage: (1.4 MG/12 HOURS)
     Route: 048
     Dates: start: 20180320, end: 20180611
  7. UPTRAVI [Suspect]
     Active Substance: SELEXIPAG
     Dosage: (1.6 MG/12 HOURS)
     Route: 048
     Dates: start: 20180612, end: 20200101
  8. THEOPHYLLINE ANHYDROUS [Concomitant]
     Active Substance: THEOPHYLLINE ANHYDROUS
     Indication: Chronic obstructive pulmonary disease
     Dates: start: 20170725, end: 20200101
  9. AMBROXOL HYDROCHLORIDE [Concomitant]
     Active Substance: AMBROXOL HYDROCHLORIDE
     Indication: Chronic obstructive pulmonary disease
     Dates: start: 20170725, end: 20200101

REACTIONS (2)
  - Pulmonary arterial hypertension [Fatal]
  - Chronic obstructive pulmonary disease [Fatal]
